FAERS Safety Report 5908055-X (Version None)
Quarter: 2008Q4

REPORT INFORMATION
  Report Type: 
  Country: None (occurrence: None)
  Receive Date: 20081003
  Receipt Date: 20080922
  Transmission Date: 20090506
  Serious: Yes (Hospitalization, Other)
  Sender: FDA-Public Use
  Company Number: US-PFIZER INC-2008080154

PATIENT
  Sex: Female
  Weight: 106 kg

DRUGS (8)
  1. SUTENT [Suspect]
     Indication: RENAL CANCER
     Dates: start: 20070305, end: 20070510
  2. SORAFENIB TOSILATE [Suspect]
     Indication: RENAL CANCER
     Dates: start: 20070620
  3. TEMSIROLIMUS [Suspect]
     Indication: RENAL CANCER
     Dates: start: 20070101
  4. PROLEUKIN [Suspect]
     Route: 058
     Dates: start: 20080101
  5. AVAPRO [Concomitant]
     Indication: BLOOD PRESSURE
  6. SYNTHROID [Concomitant]
     Indication: THYROID DISORDER
  7. SPIRIVA [Concomitant]
     Indication: DYSPNOEA
  8. IPRATROPIUM BROMIDE [Concomitant]
     Dosage: FREQ:THROUGH NOSE 2-3 TIMES A DAY
     Route: 055

REACTIONS (12)
  - ANOREXIA [None]
  - ASTHENIA [None]
  - CHILLS [None]
  - CONSTIPATION [None]
  - DIARRHOEA [None]
  - DYSARTHRIA [None]
  - FATIGUE [None]
  - LOSS OF CONSCIOUSNESS [None]
  - MALAISE [None]
  - NAUSEA [None]
  - NEPHRECTOMY [None]
  - VOMITING [None]
